FAERS Safety Report 8553664-5 (Version None)
Quarter: 2012Q3

REPORT INFORMATION
  Report Type: 
  Country: None (occurrence: None)
  Receive Date: 20120731
  Receipt Date: 20071019
  Transmission Date: 20120928
  Serious: Yes (Other)
  Sender: FDA-Public Use
  Company Number: CO-PFIZER INC-2012182756

PATIENT
  Age: 54 Year
  Sex: Female

DRUGS (5)
  1. ACETYLSALICYLIC ACID [Concomitant]
     Dosage: 100 MG, 1X/DAY
  2. ENALAPRIL MALEATE [Concomitant]
     Dosage: 20 MG, 2X/DAY
  3. LIPITOR [Suspect]
     Dosage: 10 MG, 1X/DAY
     Route: 065
  4. HYDROCHLOROTHIAZIDE [Concomitant]
     Dosage: 25 MG, 1X/DAY
  5. METOPROLOL TARTRATE [Concomitant]
     Dosage: 100 MG, 2X/DAY
     Route: 065

REACTIONS (2)
  - ANGIOPATHY [None]
  - PAIN IN EXTREMITY [None]
